FAERS Safety Report 5048423-4 (Version None)
Quarter: 2006Q3

REPORT INFORMATION
  Report Type: 
  Country: None (occurrence: None)
  Receive Date: 20060705
  Receipt Date: 20060622
  Transmission Date: 20061208
  Serious: Yes (Other)
  Sender: FDA-Public Use
  Company Number: 2006-06-0163

PATIENT
  Age: 13 Year
  Sex: Male

DRUGS (3)
  1. MOMETASONE FUROATE [Suspect]
     Dosage: INHALATION
     Route: 055
     Dates: start: 20060406, end: 20060419
  2. ALBUTEROL SPIROS [Concomitant]
  3. RHINOCORT [Concomitant]

REACTIONS (5)
  - ABNORMAL BEHAVIOUR [None]
  - INSOMNIA [None]
  - NIGHT SWEATS [None]
  - NIGHTMARE [None]
  - PSYCHOTIC DISORDER [None]
